FAERS Safety Report 6312141-2 (Version None)
Quarter: 2009Q3

REPORT INFORMATION
  Report Type: 
  Country: None (occurrence: None)
  Receive Date: 20090817
  Receipt Date: 20090812
  Transmission Date: 20100115
  Serious: Yes (Other)
  Sender: FDA-Public Use
  Company Number: US-BAYER-200912958BCC

PATIENT
  Age: 50 Year
  Sex: Female
  Weight: 144 kg

DRUGS (14)
  1. ASPIRIN [Suspect]
     Indication: ISCHAEMIC HEART DISEASE PROPHYLAXIS
     Dosage: TOTAL DAILY DOSE: 81 MG  UNIT DOSE: 81 MG
     Route: 048
     Dates: start: 20080101, end: 20090101
  2. DEPAKOTE [Concomitant]
  3. ESCALITH [Concomitant]
  4. LEXAPRO [Concomitant]
  5. CLONAZEPAM [Concomitant]
  6. LEVOTHYROXINE SODIUM [Concomitant]
  7. DUETACT (GLIMEPIRIDE AND PIOGLITAZONE) [Concomitant]
  8. METFORMIN [Concomitant]
  9. IMODIUM [Concomitant]
  10. AMOXICILLIN [Concomitant]
     Indication: TOOTH DISORDER
  11. PENICILLIN [Concomitant]
     Indication: TOOTH DISORDER
  12. ERYTHROMYCIN [Concomitant]
     Indication: TOOTH DISORDER
  13. AUGMENTIN [Concomitant]
     Indication: TOOTH DISORDER
  14. VITAMIN [Concomitant]

REACTIONS (2)
  - DUODENAL ULCER [None]
  - GASTRIC ULCER [None]
